FAERS Safety Report 13110270 (Version 1)
Quarter: 2017Q1

REPORT INFORMATION
  Report Type: Spontaneous
  Country: US (occurrence: US)
  Receive Date: 20170112
  Receipt Date: 20170112
  Transmission Date: 20170428
  Serious: Yes (Death)
  Sender: FDA-Public Use
  Company Number: US-ROCHE-GNE311595

PATIENT
  Age: 95 Year
  Sex: Male
  Weight: 96.1 kg

DRUGS (1)
  1. ACTIVASE [Suspect]
     Active Substance: ALTEPLASE
     Indication: ISCHAEMIC STROKE
     Dosage: 86 MG, X1
     Route: 042
     Dates: start: 20100717

REACTIONS (2)
  - Epistaxis [None]
  - Haemoptysis [Fatal]

NARRATIVE: CASE EVENT DATE: 20100717
